FAERS Safety Report 25433810 (Version 1)
Quarter: 2025Q2

REPORT INFORMATION
  Report Type: Other
  Country: CN (occurrence: CN)
  Receive Date: 20250613
  Receipt Date: 20250613
  Transmission Date: 20250717
  Serious: Yes (Hospitalization)
  Sender: PARATEK PHARMACEUTICALS
  Company Number: CN-PARATEK PHARMACEUTICALS, INC.-2025PTK00723

PATIENT
  Age: 88 Year
  Sex: Female

DRUGS (2)
  1. NUZYRA [Suspect]
     Active Substance: OMADACYCLINE
     Indication: Pneumonia
     Dosage: 0.2 G, QD
     Route: 048
     Dates: start: 20250513, end: 20250513
  2. NUZYRA [Suspect]
     Active Substance: OMADACYCLINE
     Dosage: 0.1 G, QD
     Route: 048
     Dates: start: 20250514, end: 20250516

REACTIONS (9)
  - Gamma-glutamyltransferase increased [Not Recovered/Not Resolved]
  - Bile acids increased [Recovered/Resolved]
  - Blood bilirubin increased [Not Recovered/Not Resolved]
  - Bilirubin conjugated increased [Not Recovered/Not Resolved]
  - Condition aggravated [Not Recovered/Not Resolved]
  - Aspartate aminotransferase increased [Recovering/Resolving]
  - Blood bilirubin unconjugated increased [Not Recovered/Not Resolved]
  - Alanine aminotransferase increased [Unknown]
  - Blood alkaline phosphatase increased [Unknown]

NARRATIVE: CASE EVENT DATE: 20250516
